FAERS Safety Report 4781044-7 (Version None)
Quarter: 2005Q3

REPORT INFORMATION
  Report Type: 
  Country: None (occurrence: None)
  Receive Date: 20050927
  Receipt Date: 20050927
  Transmission Date: 20060218
  Serious: Yes (Disabling)
  Sender: FDA-Public Use
  Company Number: None

PATIENT
  Sex: Female
  Weight: 52.1637 kg

DRUGS (1)
  1. CIPROFLOXACIN [Suspect]
     Indication: URINARY TRACT INFECTION
     Dosage: 1   2 PO
     Route: 048
     Dates: start: 20040421, end: 20040501

REACTIONS (5)
  - NEUROPATHY PERIPHERAL [None]
  - SERUM SICKNESS [None]
  - SUNBURN [None]
  - VASCULITIS [None]
  - VISUAL DISTURBANCE [None]
